FAERS Safety Report 20533091 (Version 1)
Quarter: 2022Q1

REPORT INFORMATION
  Report Type: Spontaneous
  Country: US (occurrence: US)
  Receive Date: 20220301
  Receipt Date: 20220301
  Transmission Date: 20220423
  Serious: No
  Sender: FDA-Public Use
  Company Number: US-TAKEDA-2022TUS013169

PATIENT

DRUGS (1)
  1. FOSRENOL [Suspect]
     Active Substance: LANTHANUM CARBONATE
     Indication: Product used for unknown indication
     Route: 065

REACTIONS (2)
  - Product dispensing error [Unknown]
  - No adverse event [Unknown]
